FAERS Safety Report 9059255 (Version 1)
Quarter: 2013Q1

REPORT INFORMATION
  Report Type: Spontaneous
  Country: FR (occurrence: FR)
  Receive Date: 20130211
  Receipt Date: 20130211
  Transmission Date: 20140127
  Serious: Yes (Hospitalization, Other)
  Sender: FDA-Public Use
  Company Number: FR-ELI_LILLY_AND_COMPANY-FR201302000154

PATIENT
  Age: 68 None
  Sex: Female

DRUGS (5)
  1. BYETTA [Suspect]
     Indication: DIABETES MELLITUS
     Dosage: UNK
     Route: 058
     Dates: start: 2010, end: 20120910
  2. METFORMINE [Concomitant]
     Indication: DIABETES MELLITUS
     Dosage: 1000 MG, UNK
     Route: 048
     Dates: start: 1983, end: 20120910
  3. SIMVASTATINE [Concomitant]
     Indication: HYPERLIPIDAEMIA
     Dosage: UNK
     Route: 048
     Dates: start: 2009, end: 20120910
  4. AMILORIDE [Concomitant]
     Indication: HYPERTENSION
     Dosage: UNK
     Route: 048
     Dates: start: 2010, end: 20120910
  5. KARDEGIC [Concomitant]
     Indication: PROPHYLAXIS
     Dosage: 75 MG, QD
     Dates: start: 2010, end: 20120910

REACTIONS (13)
  - Hypoglycaemic coma [Recovered/Resolved with Sequelae]
  - Syncope [Unknown]
  - Lactic acidosis [Recovered/Resolved with Sequelae]
  - Angina pectoris [Unknown]
  - Renal failure acute [Recovered/Resolved with Sequelae]
  - Cognitive disorder [Unknown]
  - Muscle spasms [Unknown]
  - Confusional state [Unknown]
  - Pneumonia [Recovering/Resolving]
  - Abdominal pain [Unknown]
  - Vomiting [Unknown]
  - Nausea [Unknown]
  - Asthenia [Unknown]
